FAERS Safety Report 13666851 (Version 1)
Quarter: 2017Q2

REPORT INFORMATION
  Report Type: Spontaneous
  Country: US (occurrence: US)
  Receive Date: 20170619
  Receipt Date: 20170619
  Transmission Date: 20170830
  Serious: Yes (Hospitalization)
  Sender: FDA-Public Use
  Company Number: US-ROCHE-690286

PATIENT
  Age: 86 Year
  Sex: Male
  Weight: 79 kg

DRUGS (6)
  1. XELODA [Suspect]
     Active Substance: CAPECITABINE
     Indication: COLORECTAL CANCER
     Dosage: 1 WEEK ON/ 1 WEEK OFF
     Route: 048
     Dates: start: 20090624, end: 20090924
  2. FELODIPINE. [Concomitant]
     Active Substance: FELODIPINE
     Indication: HYPERTENSION
     Route: 048
  3. LIPITOR [Concomitant]
     Active Substance: ATORVASTATIN CALCIUM
     Indication: BLOOD CHOLESTEROL
     Route: 048
  4. ATENOLOL. [Concomitant]
     Active Substance: ATENOLOL
     Indication: HYPERTENSION
     Route: 048
  5. XELODA [Suspect]
     Active Substance: CAPECITABINE
     Dosage: 1 WEEK ON/ 1 WEEK OFF
     Route: 048
  6. ASPIRIN. [Concomitant]
     Active Substance: ASPIRIN
     Route: 048

REACTIONS (4)
  - Dizziness [Not Recovered/Not Resolved]
  - Deafness [Unknown]
  - Vertigo [Unknown]
  - Ear infection [Unknown]

NARRATIVE: CASE EVENT DATE: 200909
